FAERS Safety Report 9577229 (Version 1)
Quarter: 2013Q4

REPORT INFORMATION
  Report Type: Spontaneous
  Country: US (occurrence: US)
  Receive Date: 20131001
  Receipt Date: 20131001
  Transmission Date: 20140711
  Serious: No
  Sender: FDA-Public Use
  Company Number: US-AMGEN-USASP2013007639

PATIENT
  Age: 61 Year
  Sex: Female
  Weight: 90.7 kg

DRUGS (4)
  1. ENBREL [Suspect]
     Indication: PRODUCT USED FOR UNKNOWN INDICATION
     Dosage: 50 MG, QWK
     Route: 058
  2. VICODIN [Concomitant]
     Dosage: 5-300 MG
  3. IBUPROFEN [Concomitant]
     Dosage: 200 MG, UNK
  4. TYLENOL 8 HOUR [Concomitant]
     Dosage: 650 MG, UNK

REACTIONS (4)
  - Joint swelling [Unknown]
  - Joint warmth [Unknown]
  - Local swelling [Unknown]
  - Feeling hot [Unknown]
